FAERS Safety Report 9102991 (Version 8)
Quarter: 2013Q3

REPORT INFORMATION
  Report Type: Report from Study
  Country: JP (occurrence: JP)
  Receive Date: 20130219
  Receipt Date: 20130814
  Transmission Date: 20140515
  Serious: Yes (Death)
  Sender: FDA-Public Use
  Company Number: JP-B.I. PHARMACEUTICALS,INC./RIDGEFIELD-2013-BI-03740NB

PATIENT
  Age: 75 Year
  Sex: Male
  Weight: 53.6 kg

DRUGS (4)
  1. PRAZAXA [Suspect]
     Indication: ATRIAL FIBRILLATION
     Dosage: 300 MG
     Route: 048
     Dates: start: 20121016, end: 20121029
  2. PRAZAXA [Suspect]
     Indication: PROPHYLAXIS
  3. SOTACOR [Concomitant]
     Indication: ATRIAL FIBRILLATION
     Dosage: 80 MG
     Route: 048
  4. ARTIST [Concomitant]
     Dosage: 5 MG
     Route: 048

REACTIONS (2)
  - Bile duct cancer [Fatal]
  - Hepatic cirrhosis [Fatal]
